FAERS Safety Report 4305193-2 (Version None)
Quarter: 2004Q1

REPORT INFORMATION
  Report Type: 
  Country: None (occurrence: None)
  Receive Date: 20040226
  Receipt Date: 20040213
  Transmission Date: 20041129
  Serious: Yes (Hospitalization)
  Sender: FDA-Public Use
  Company Number: FI-GLAXOSMITHKLINE-B0323267A

PATIENT
  Age: 59 Year
  Sex: Female

DRUGS (6)
  1. LAMICTAL [Suspect]
     Indication: DEPRESSION
     Dosage: 150MG PER DAY
     Route: 048
     Dates: start: 20030711
  2. LEPONEX [Suspect]
     Indication: PSYCHOTIC DISORDER
     Dosage: 500MG PER DAY
     Route: 048
     Dates: start: 20020709
  3. CIPRAMIL [Concomitant]
     Indication: DEPRESSION
     Route: 048
  4. STESOLID [Concomitant]
     Indication: DEPRESSION
     Route: 048
  5. FEMOSTON CONTI [Concomitant]
     Indication: DRUG USE FOR UNKNOWN INDICATION
     Route: 048
  6. MILK MAGNESIUM [Concomitant]
     Indication: DRUG USE FOR UNKNOWN INDICATION
     Route: 048

REACTIONS (5)
  - ABASIA [None]
  - DRUG INTERACTION [None]
  - DRUG TOXICITY [None]
  - SOMNOLENCE [None]
  - URINARY INCONTINENCE [None]
